FAERS Safety Report 6303172-7 (Version None)
Quarter: 2009Q3

REPORT INFORMATION
  Report Type: 
  Country: None (occurrence: None)
  Receive Date: 20090810
  Receipt Date: 20090422
  Transmission Date: 20100115
  Serious: No
  Sender: FDA-Public Use
  Company Number: A0779929A

PATIENT
  Age: 69 Year
  Sex: Female

DRUGS (8)
  1. PAROXETINE HCL [Suspect]
     Indication: POST-TRAUMATIC STRESS DISORDER
     Dosage: 25MG PER DAY
     Route: 048
     Dates: start: 20080610, end: 20080611
  2. XANAX [Concomitant]
  3. GLAUCOMA EYE DROPS (UNSPECIFIED) [Concomitant]
  4. SYNTHROID [Concomitant]
  5. ASTHMA MEDICATION [Concomitant]
  6. IPRATROPIUM BROMIDE [Concomitant]
  7. INHALER [Concomitant]
  8. CALCITRIOL [Concomitant]

REACTIONS (4)
  - DRUG INEFFECTIVE [None]
  - HYPERHIDROSIS [None]
  - MALAISE [None]
  - TREMOR [None]
